FAERS Safety Report 25361207 (Version 1)
Quarter: 2025Q2

REPORT INFORMATION
  Report Type: Spontaneous
  Country: GR (occurrence: GR)
  Receive Date: 20250527
  Receipt Date: 20250527
  Transmission Date: 20250717
  Serious: Yes (Death, Other)
  Sender: SERVIER
  Company Number: GR-SERVIER-S25007287

PATIENT

DRUGS (1)
  1. TIBSOVO [Suspect]
     Active Substance: IVOSIDENIB
     Indication: Cholangiocarcinoma
     Dosage: 500 MG, QD
     Route: 048
     Dates: start: 202502, end: 202504

REACTIONS (2)
  - Malignant neoplasm progression [Fatal]
  - Ascites [Unknown]
